FAERS Safety Report 15525152 (Version 1)
Quarter: 2018Q4

REPORT INFORMATION
  Report Type: Report from Study
  Country: DE (occurrence: DE)
  Receive Date: 20181019
  Receipt Date: 20181019
  Transmission Date: 20190205
  Serious: Yes (Death, Life-Threatening, Hospitalization, Other)
  Sender: FDA-Public Use
  Company Number: DE-BRISTOL-MYERS SQUIBB COMPANY-BMS-2017-122176

PATIENT
  Age: 28 Year
  Sex: Female
  Weight: 70 kg

DRUGS (29)
  1. NIVOLUMAB [Suspect]
     Active Substance: NIVOLUMAB
     Indication: MALIGNANT MELANOMA
     Dosage: 65 MG, Q2WK; DRUG INTERVAL DOSAGE UNIT NUMBER: 1 WEEK
     Route: 042
     Dates: start: 20170206, end: 20180321
  2. TRAMETINIB [Suspect]
     Active Substance: TRAMETINIB
     Indication: PRODUCT USED FOR UNKNOWN INDICATION
     Dosage: 2 MG, QD; DRUG INTERVAL DOSAGE UNIT NUMBER: 1 DAY
     Route: 048
     Dates: start: 20170412
  3. ELEKTROLYT 153 [Concomitant]
     Indication: MALIGNANT MELANOMA
     Dosage: UNK
     Route: 042
  4. PREGABALINE [Concomitant]
     Active Substance: PREGABALIN
     Indication: MALIGNANT MELANOMA
     Dosage: 25 MG, EVERY 3 DAYS
     Route: 048
  5. METAMIZOLE [Concomitant]
     Active Substance: METAMIZOLE
     Indication: MALIGNANT MELANOMA
     Dosage: 1 MG, PRN
     Route: 048
  6. TAFINLAR [Suspect]
     Active Substance: DABRAFENIB MESYLATE
     Indication: METASTATIC MALIGNANT MELANOMA
     Dosage: 150 MG, BID; DRUG INTERVAL DOSAGE UNIT NUMBER 1 DAY
     Route: 048
     Dates: start: 20161026, end: 20170106
  7. SODIUM PHOSPHATE [Concomitant]
     Active Substance: SODIUM PHOSPHATE
     Indication: MALIGNANT MELANOMA
     Dosage: 250 ML, QD; DRUG INTERVAL DOSAGE UNIT: 1 DAY
     Route: 042
     Dates: start: 20161027, end: 20161101
  8. METHYLPREDISOLONE [Concomitant]
     Active Substance: METHYLPREDNISOLONE
     Indication: MALIGNANT MELANOMA
     Dosage: 16 MG (2 STAGGERED), UNK
     Route: 048
  9. HYDROMORPHONE [Concomitant]
     Active Substance: HYDROMORPHONE
     Indication: MALIGNANT MELANOMA
     Dosage: 0.8 MG, QD (DAILY PER PUMP); DRUG INTERVAL DOSAGE UNIT NUMBER WAS 1 DAY.
     Route: 058
     Dates: start: 20170504
  10. MIRTAZAPIN [Concomitant]
     Active Substance: MIRTAZAPINE
     Indication: MALIGNANT MELANOMA
     Dosage: 15 MG, QD; DRUG INTERVAL DOSAGE UNIT: 1 DAY
     Route: 048
     Dates: start: 20161011, end: 20161027
  11. MERONEM [Concomitant]
     Active Substance: MEROPENEM
     Indication: PRODUCT USED FOR UNKNOWN INDICATION
     Dosage: 500 MG, QD; DRUG INTERVAL DOSAGE UNIT NUMBER WAS 1 DAY
     Route: 042
     Dates: start: 20161021, end: 20161102
  12. TRAMETINIB [Suspect]
     Active Substance: TRAMETINIB
     Indication: METASTATIC MALIGNANT MELANOMA
     Dosage: 2 MG, QD; DRUG INTERVAL DOSAGE UNIT NUMBER: 1 DAY
     Route: 048
     Dates: start: 20161026, end: 20170106
  13. ABSTRAL [Concomitant]
     Active Substance: FENTANYL CITRATE
     Indication: MALIGNANT MELANOMA
     Dosage: 471.3 ?G, (6 PER DAY)
     Route: 065
  14. TAZOBAC [Concomitant]
     Active Substance: PIPERACILLIN SODIUM\TAZOBACTAM SODIUM
     Indication: PRODUCT USED FOR UNKNOWN INDICATION
     Dosage: UNK
     Route: 042
     Dates: start: 20161104, end: 20161108
  15. DEXAMETHASONE. [Concomitant]
     Active Substance: DEXAMETHASONE
     Indication: MALIGNANT MELANOMA
     Dosage: 8 MG, BID; DRUG INTERVAL DOSAGE UNIT NUMBER WAS 1 DAY.
     Route: 048
     Dates: start: 20170420
  16. TAFINLAR [Suspect]
     Active Substance: DABRAFENIB MESYLATE
     Indication: PRODUCT USED FOR UNKNOWN INDICATION
     Dosage: 150 MG, BID; DRUG INTERVAL DOSAGE UNIT NUMBER 1 DAY
     Route: 048
     Dates: start: 20170412
  17. LAXOBERAL [Concomitant]
     Active Substance: SODIUM PICOSULFATE
     Indication: MALIGNANT MELANOMA
     Dosage: 1 G, QD; DRUG INTERVAL DOSAGE UNIT NUMBER: 1 DAY
     Route: 054
     Dates: start: 20170131
  18. OXYCODON [Concomitant]
     Active Substance: OXYCODONE
     Indication: MALIGNANT MELANOMA
     Dosage: 10 MG, QD; DRUG INTERVAL DOSAGE UNIT NUMBER WAS 1 DAY
     Route: 048
     Dates: start: 20161115
  19. METAMIZOLE [Suspect]
     Active Substance: METAMIZOLE
     Indication: MALIGNANT MELANOMA
     Dosage: 1 G, PRN
     Route: 048
  20. GLYCEROL W/GLYCERYL MONOSTEARATE/PARAFFIN, LI [Concomitant]
     Indication: MALIGNANT MELANOMA
     Dosage: 1 G, QD; DRUG INTERVAL DOSAGE UNIT NUMBER: 1 DAY
     Route: 054
     Dates: start: 20170131
  21. BISCODYL [Concomitant]
     Active Substance: BISACODYL
     Indication: MALIGNANT MELANOMA
     Dosage: 10 MG, QD;DRUG INTERVAL DOSAGE UNIT NUMBER: 1 DAY
     Route: 054
     Dates: start: 20170131
  22. ZOMETA [Concomitant]
     Active Substance: ZOLEDRONIC ACID
     Indication: MALIGNANT MELANOMA
     Dosage: 4 MG, QD; DRUG INTERVAL DOSAGE UNIT NUMBER WAS 1 DAY.
     Route: 042
     Dates: start: 20161111, end: 20161112
  23. PARACETAMOL [Concomitant]
     Active Substance: ACETAMINOPHEN
     Indication: MALIGNANT MELANOMA
     Dosage: 500 MG, QD; DRUG INTERVAL DOSAGE UNIT: 1 DAY
     Route: 048
  24. IBUPROFEN AND PSEUDOEPHEDRINE HYDROCHLORIDE [Concomitant]
     Active Substance: IBUPROFEN\PSEUDOEPHEDRINE HYDROCHLORIDE
     Indication: MALIGNANT MELANOMA
     Dosage: 600 MG, TID; DRUG INTERVAL DOSAGE UNIT: 1 DAY
     Route: 048
     Dates: start: 20170131
  25. OLANZAPIN HORMOSAN [Concomitant]
     Indication: MALIGNANT MELANOMA
     Dosage: 5 MG, QD; DRUG INTERVAL DOSAGE UNIT: 1 DAY
     Route: 048
  26. IPILIMUMAB [Concomitant]
     Active Substance: IPILIMUMAB
     Indication: MALIGNANT MELANOMA
     Dosage: 195 MG, QW2; DRUG INTERVAL DOSAGE UNIT: 1 WEEK
     Route: 042
     Dates: start: 20170206
  27. FENTANYL CITRATE. [Concomitant]
     Active Substance: FENTANYL CITRATE
     Indication: MALIGNANT MELANOMA
     Dosage: 200 ?G, PRN
     Route: 048
  28. INFLIXIMAB [Concomitant]
     Active Substance: INFLIXIMAB
     Indication: MALIGNANT MELANOMA
     Dosage: 5 MG/KG, QD; DRUG INTERVAL DOSAGE UNIT NUMBER WAS 1 DAY.
     Route: 042
     Dates: start: 20161026, end: 20161027
  29. VAGIMID [Concomitant]
     Active Substance: ALLANTOIN\AMINACRINE HYDROCHLORIDE\SULFANILAMIDE
     Indication: PRODUCT USED FOR UNKNOWN INDICATION
     Dosage: UNK
     Route: 065
     Dates: start: 20161024, end: 20161027

REACTIONS (8)
  - Metastatic malignant melanoma [Fatal]
  - Agranulocytosis [Recovered/Resolved]
  - Haemorrhage [Unknown]
  - Metastasis [Unknown]
  - Haemoglobin decreased [Recovered/Resolved]
  - Pharyngitis streptococcal [Recovered/Resolved]
  - Malignant neoplasm progression [Fatal]
  - Metastases to adrenals [Unknown]

NARRATIVE: CASE EVENT DATE: 20161027
